FAERS Safety Report 6096572-4 (Version None)
Quarter: 2009Q1

REPORT INFORMATION
  Report Type: 
  Country: None (occurrence: None)
  Receive Date: 20090225
  Receipt Date: 20090215
  Transmission Date: 20090719
  Serious: Yes (Other)
  Sender: FDA-Public Use
  Company Number: MOZO-1000162

PATIENT
  Age: 43 Year
  Sex: Female
  Weight: 84 kg

DRUGS (2)
  1. PLERIXAFOR (PLERIXAFOR) SOLUTION FOR INJECTION [Suspect]
     Indication: HAEMATOPOIETIC STEM CELL MOBILISATION
     Dosage: 19.5 MG, QD, SUBCUTANEOUS
     Route: 058
     Dates: start: 20090202
  2. G-CSF (GRANULOCYTE COLONY STIMULATING FACTOR) [Concomitant]

REACTIONS (2)
  - WHITE BLOOD CELL COUNT INCREASED [None]
  - WHITE BLOOD CELL DISORDER [None]
